FAERS Safety Report 5254085-3 (Version None)
Quarter: 2007Q1

REPORT INFORMATION
  Report Type: 
  Country: None (occurrence: None)
  Receive Date: 20070302
  Receipt Date: 20070222
  Transmission Date: 20070707
  Serious: Yes (Life-Threatening, Other)
  Sender: FDA-Public Use
  Company Number: PHBS2007BE02476

PATIENT
  Age: 70 Year
  Sex: Male

DRUGS (6)
  1. ZOMETA [Suspect]
     Dosage: 4 MG, (6 CYCLES, 4 MG EACH)
     Route: 065
     Dates: start: 20060328, end: 20061004
  2. SIMVASTATIN [Concomitant]
     Dosage: 40 MG/D
     Route: 065
  3. ATACAND [Concomitant]
     Indication: HYPERTENSION
     Dosage: 16 MG, QD
     Dates: end: 20061018
  4. TENORETIC 100 [Concomitant]
     Indication: HYPERTENSION
     Dosage: 100 MG/D
     Route: 065
     Dates: end: 20061018
  5. LUCRIN [Concomitant]
     Indication: PROSTATE CANCER
     Dosage: ONCE PER MONTH
     Route: 065
  6. CASODEX [Concomitant]
     Indication: PROSTATE CANCER
     Dosage: 50 MG/D
     Route: 065

REACTIONS (16)
  - BLOOD ALBUMIN DECREASED [None]
  - BLOOD CALCIUM DECREASED [None]
  - BLOOD CREATININE INCREASED [None]
  - BLOOD UREA INCREASED [None]
  - BLOOD URINE PRESENT [None]
  - COLON CANCER [None]
  - CREATININE RENAL CLEARANCE DECREASED [None]
  - DEHYDRATION [None]
  - DIALYSIS [None]
  - DIARRHOEA [None]
  - HAEMOGLOBIN DECREASED [None]
  - METASTASES TO LIVER [None]
  - PROTEIN TOTAL DECREASED [None]
  - RENAL FAILURE ACUTE [None]
  - URINE OUTPUT DECREASED [None]
  - VOMITING [None]
